FAERS Safety Report 8357942-4 (Version None)
Quarter: 2012Q2

REPORT INFORMATION
  Report Type: 
  Country: None (occurrence: None)
  Receive Date: 20120514
  Receipt Date: 20120503
  Transmission Date: 20120825
  Serious: Yes (Other)
  Sender: FDA-Public Use
  Company Number: CA-JNJFOC-20120503644

PATIENT
  Sex: Female
  Weight: 80 kg

DRUGS (13)
  1. CRESTOR [Concomitant]
     Route: 065
  2. METHOTREXATE [Concomitant]
     Route: 058
  3. METFORMIN HCL [Concomitant]
     Route: 065
  4. FOLIC ACID [Concomitant]
     Dosage: 5 DAYS A WEEK
     Route: 065
  5. VITAMIN B-12 [Concomitant]
     Route: 065
  6. TYLENOL W/ CODEINE NO. 3 [Concomitant]
     Dosage: UPTO 4 PER DAY
     Route: 065
  7. ASPIRIN [Concomitant]
     Route: 065
  8. XANAX [Concomitant]
     Route: 065
  9. PRILOSEC [Concomitant]
     Route: 065
  10. METOPROLOL TARTRATE [Concomitant]
     Route: 065
  11. NORVASC [Concomitant]
     Route: 065
  12. REMICADE [Suspect]
     Indication: RHEUMATOID ARTHRITIS
     Route: 042
     Dates: start: 20030717
  13. MICARDIS [Concomitant]
     Route: 065

REACTIONS (3)
  - CHEST DISCOMFORT [None]
  - DYSPNOEA [None]
  - VIRAL INFECTION [None]
